FAERS Safety Report 7176687-X (Version None)
Quarter: 2010Q4

REPORT INFORMATION
  Report Type: 
  Country: None (occurrence: None)
  Receive Date: 20101220
  Receipt Date: 20101214
  Transmission Date: 20110411
  Serious: Yes (Other)
  Sender: FDA-Public Use
  Company Number: US-B.I. PHARMACEUTICALS,INC./RIDGEFIELD-2010-BP-11625BP

PATIENT
  Age: 61 Year
  Sex: Male
  Weight: 74.84 kg

DRUGS (9)
  1. SPIRIVA [Suspect]
     Indication: LUNG NEOPLASM MALIGNANT
     Dosage: 18 MCG
     Route: 055
  2. TOPROL-XL [Concomitant]
  3. SIMVASTATIN [Concomitant]
  4. REGLAN [Concomitant]
  5. DECADRON [Concomitant]
  6. METRONIDAZOLE [Concomitant]
  7. ALBUTEROL [Concomitant]
  8. VALIUM [Concomitant]
  9. MICRO-K [Concomitant]

REACTIONS (1)
  - NEOPLASM MALIGNANT [None]
